FAERS Safety Report 5414203-0 (Version None)
Quarter: 2007Q3

REPORT INFORMATION
  Report Type: 
  Country: None (occurrence: None)
  Receive Date: 20070814
  Receipt Date: 20070802
  Transmission Date: 20080115
  Serious: Yes (Other)
  Sender: FDA-Public Use
  Company Number: US-PFIZER INC-2007064243

PATIENT
  Sex: Male
  Weight: 11.818 kg

DRUGS (1)
  1. ZITHROMAX [Suspect]
     Indication: EAR INFECTION
     Route: 048
     Dates: start: 20070201, end: 20070731

REACTIONS (2)
  - FOOD ALLERGY [None]
  - HYPERSENSITIVITY [None]
